FAERS Safety Report 8827679 (Version 1)
Quarter: 2012Q4

REPORT INFORMATION
  Report Type: 
  Country: FR (occurrence: FR)
  Receive Date: 20121005
  Receipt Date: 20121005
  Transmission Date: 20130627
  Serious: Yes (Hospitalization, Other)
  Sender: FDA-Public Use
  Company Number: PHHY2012FR084974

PATIENT
  Age: 65 Year
  Sex: Male

DRUGS (12)
  1. VOLTARENE [Suspect]
     Indication: DIABETES INSIPIDUS
     Dosage: 1 DF, TID
     Route: 048
     Dates: start: 20120822, end: 20120906
  2. ATARAX [Concomitant]
     Dosage: 100 mg, QD
  3. IKARAN [Concomitant]
     Dosage: 5 mg, BID
  4. DUPHALAC [Concomitant]
     Dosage: 1 DF, TID
  5. KARDEGIC [Concomitant]
     Dosage: 75 mg, QD
  6. CRESTOR [Concomitant]
     Dosage: 10 mg, QD
  7. MODAMIDE [Concomitant]
     Indication: DIABETES INSIPIDUS
     Dosage: 5 mg, QD
     Dates: start: 20120822
  8. RANIPLEX [Concomitant]
     Dates: start: 20120822, end: 20120828
  9. ESOMEPRAZOLE [Concomitant]
     Indication: ABDOMINAL DISCOMFORT
     Dosage: 200 mg, QD
     Route: 042
     Dates: start: 20120902, end: 20120903
  10. CORDARONE [Concomitant]
     Dosage: 200 mg, QD
     Dates: start: 20120903
  11. BISOPROLOL HEMIFUMARATE [Concomitant]
     Dosage: 5 mg, QD
     Dates: start: 20120903
  12. ESIDREX [Concomitant]
     Dosage: 25 mg, QD
     Dates: start: 20120903

REACTIONS (13)
  - Duodenal ulcer perforation [Not Recovered/Not Resolved]
  - Pneumoperitoneum [Not Recovered/Not Resolved]
  - Abdominal distension [Unknown]
  - Anaemia [Unknown]
  - Shock [Unknown]
  - Altered state of consciousness [Unknown]
  - Hypotension [Unknown]
  - Somnolence [Unknown]
  - Nephrogenic diabetes insipidus [Unknown]
  - Condition aggravated [Unknown]
  - Polyuria [Unknown]
  - Pyrexia [Unknown]
  - Hypernatraemia [Unknown]
